FAERS Safety Report 7918642-5 (Version None)
Quarter: 2011Q4

REPORT INFORMATION
  Report Type: 
  Country: None (occurrence: None)
  Receive Date: 20111116
  Receipt Date: 20111111
  Transmission Date: 20120403
  Serious: Yes (Hospitalization)
  Sender: FDA-Public Use
  Company Number: US-ABBOTT-11P-163-0873844-00

PATIENT
  Sex: Male

DRUGS (8)
  1. ZIDOVUDINE [Concomitant]
     Indication: HIV INFECTION
  2. NORVIR [Suspect]
     Indication: HIV INFECTION
     Dates: start: 20060101
  3. VALTREX [Concomitant]
     Indication: HIV INFECTION
  4. FLOVENT [Suspect]
     Indication: CHRONIC OBSTRUCTIVE PULMONARY DISEASE
     Dates: start: 20110922, end: 20111105
  5. NORCO [Concomitant]
     Indication: PAIN
  6. ATROVENT [Concomitant]
     Indication: CHRONIC OBSTRUCTIVE PULMONARY DISEASE
  7. NAPROXEN [Concomitant]
     Indication: PAIN
  8. TRUVADA [Concomitant]
     Indication: HIV INFECTION

REACTIONS (5)
  - FLUID RETENTION [None]
  - WEIGHT INCREASED [None]
  - ABDOMINAL DISTENSION [None]
  - SWELLING FACE [None]
  - PNEUMONIA [None]
